FAERS Safety Report 6195741-2 (Version None)
Quarter: 2009Q2

REPORT INFORMATION
  Report Type: 
  Country: None (occurrence: None)
  Receive Date: 20090520
  Receipt Date: 20070921
  Transmission Date: 20091009
  Serious: Yes (Hospitalization, Other)
  Sender: FDA-Public Use
  Company Number: US-ASTRAZENECA-2007UW11050

PATIENT
  Age: 45 Year
  Sex: Male
  Weight: 74.8 kg

DRUGS (26)
  1. SEROQUEL [Suspect]
     Indication: BIPOLAR DISORDER
     Route: 048
     Dates: start: 19970101
  2. SEROQUEL [Suspect]
     Indication: DEPRESSION
     Route: 048
     Dates: start: 19970101
  3. SEROQUEL [Suspect]
     Indication: SCHIZOPHRENIA
     Route: 048
     Dates: start: 19970101
  4. SEROQUEL [Suspect]
     Dosage: 100-600MG/DAY
     Route: 048
     Dates: start: 20060615
  5. SEROQUEL [Suspect]
     Dosage: 100-600MG/DAY
     Route: 048
     Dates: start: 20060615
  6. SEROQUEL [Suspect]
     Dosage: 100-600MG/DAY
     Route: 048
     Dates: start: 20060615
  7. LIPITOR [Concomitant]
     Route: 048
  8. CLONIDINE [Concomitant]
     Indication: HYPERTENSION
     Dosage: 0.1 MG EVERY 6 HOURLY, 0.2 MG DAILY, 0.3 MG TWO TIMES A DAY, 0.5 MG
     Route: 048
  9. LABETALOL HCL [Concomitant]
     Route: 048
     Dates: start: 20070320
  10. MAGNESIUM OXIDE [Concomitant]
     Route: 048
  11. ASPIRIN [Concomitant]
     Dosage: 81 MG DAILY, 375 MG DAILY
     Route: 048
  12. CAPTOPRIL [Concomitant]
     Route: 065
  13. NITROGLYCERIN [Concomitant]
     Indication: CHEST PAIN
     Dosage: 0.4 MG AS NEEDED
     Route: 060
  14. ATENOLOL [Concomitant]
     Dosage: 25 MG DAILY, 100 MG DAILY
     Route: 048
  15. DIOVAN [Concomitant]
     Dosage: 160 MG TWO TIMES DAY, 320 MG DAILY
     Route: 048
  16. FOLIC ACID [Concomitant]
     Route: 048
  17. NIFEDIPINE [Concomitant]
     Route: 048
  18. RENAGEL [Concomitant]
     Dosage: 100 MG TID, 800 MG TID
     Route: 048
     Dates: start: 20070404
  19. LOPRESSOR [Concomitant]
     Route: 048
  20. LISINOPRIL [Concomitant]
     Dosage: 5 TO 10 MG STRENGTH, 20 MG EVERYDAY
     Route: 048
  21. PREVACID [Concomitant]
     Indication: PROPHYLAXIS
     Route: 048
  22. LASIX [Concomitant]
     Route: 065
  23. IMDUR [Concomitant]
     Route: 048
  24. AMBIEN [Concomitant]
     Route: 048
  25. BENADRYL [Concomitant]
     Dosage: 25 MG TO 50 MG
     Route: 048
  26. NORVASC [Concomitant]
     Indication: HYPERTENSION
     Route: 048

REACTIONS (24)
  - ACUTE MYOCARDIAL INFARCTION [None]
  - AFFECTIVE DISORDER [None]
  - ANIMAL BITE [None]
  - CARDIAC FAILURE CONGESTIVE [None]
  - CORONARY ARTERY DISEASE [None]
  - COUGH [None]
  - DIABETES MELLITUS [None]
  - FLUID OVERLOAD [None]
  - HYPERKALAEMIA [None]
  - MALAISE [None]
  - MALIGNANT HYPERTENSION [None]
  - METABOLIC ACIDOSIS [None]
  - MYOCARDIAL INFARCTION [None]
  - NEPHROGENIC ANAEMIA [None]
  - NON-CARDIAC CHEST PAIN [None]
  - OEDEMA PERIPHERAL [None]
  - PAIN IN EXTREMITY [None]
  - PRINZMETAL ANGINA [None]
  - PULMONARY OEDEMA [None]
  - RENAL FAILURE [None]
  - RENAL FAILURE ACUTE [None]
  - RENAL FAILURE CHRONIC [None]
  - SCHIZOPHRENIA, PARANOID TYPE [None]
  - THROMBOTIC THROMBOCYTOPENIC PURPURA [None]
